FAERS Safety Report 9797057 (Version 1)
Quarter: 2014Q1

REPORT INFORMATION
  Report Type: Spontaneous
  Country: JP (occurrence: JP)
  Receive Date: 20140105
  Receipt Date: 20140105
  Transmission Date: 20141002
  Serious: Yes (Other)
  Sender: FDA-Public Use
  Company Number: JP-MYLANLABS-2013S1028991

PATIENT
  Age: 60 Year
  Sex: Female

DRUGS (15)
  1. PREDNISOLONE [Suspect]
     Indication: RHEUMATOID ARTHRITIS
     Dosage: 5MG/DAY; INCREASED TO 15MG/DAY
     Route: 065
  2. PREDNISOLONE [Suspect]
     Indication: POLYARTERITIS NODOSA
     Dosage: 5MG/DAY; INCREASED TO 15MG/DAY
     Route: 065
  3. PREDNISOLONE [Suspect]
     Indication: RHEUMATOID ARTHRITIS
     Dosage: 15MG/DAY
     Route: 065
  4. PREDNISOLONE [Suspect]
     Indication: POLYARTERITIS NODOSA
     Dosage: 15MG/DAY
     Route: 065
  5. PREDNISOLONE [Suspect]
     Indication: RHEUMATOID ARTHRITIS
     Dosage: 50MG/DAY; LATER TAPERED TO 8 MG/DAY
     Route: 065
  6. PREDNISOLONE [Suspect]
     Indication: POLYARTERITIS NODOSA
     Dosage: 50MG/DAY; LATER TAPERED TO 8 MG/DAY
     Route: 065
  7. PREDNISOLONE [Suspect]
     Indication: RHEUMATOID ARTHRITIS
     Dosage: TAPERED TO 8MG/DAY; THEN INCREASED TO 15MG/DAY
     Route: 065
  8. PREDNISOLONE [Suspect]
     Indication: POLYARTERITIS NODOSA
     Dosage: TAPERED TO 8MG/DAY; THEN INCREASED TO 15MG/DAY
     Route: 065
  9. METHYLPREDNISOLONE [Suspect]
     Indication: POLYARTERITIS NODOSA
     Dosage: 500MG/DAY FOR 3 DAYS
     Route: 065
  10. METHOTREXATE [Suspect]
     Indication: POLYARTERITIS NODOSA
     Dosage: 6MG/WEEK
     Route: 065
  11. MINOCYCLINE [Concomitant]
     Indication: RHEUMATOID ARTHRITIS
     Dosage: 150MG/DAY
     Route: 065
  12. LAMIVUDINE [Concomitant]
     Dosage: 100MG/DAY
     Route: 065
  13. CICLOSPORIN [Concomitant]
     Indication: POLYARTERITIS NODOSA
     Dosage: 100MG/DAY
     Route: 065
  14. RISEDRONIC ACID [Concomitant]
     Dosage: 2.5MG DAILY
     Route: 065
  15. ADEFOVIR [Concomitant]
     Indication: HEPATITIS B
     Dosage: 10MG/DAY
     Route: 065
     Dates: start: 200611

REACTIONS (4)
  - Lumbar vertebral fracture [Unknown]
  - Pancytopenia [Recovered/Resolved]
  - Aspartate aminotransferase increased [Recovered/Resolved]
  - Alanine aminotransferase increased [Recovered/Resolved]
